FAERS Safety Report 8049726-1 (Version None)
Quarter: 2012Q1

REPORT INFORMATION
  Report Type: 
  Country: None (occurrence: None)
  Receive Date: 20120117
  Receipt Date: 20120105
  Transmission Date: 20120608
  Serious: Yes (Hospitalization)
  Sender: FDA-Public Use
  Company Number: FR-GLAXOSMITHKLINE-B0774933A

PATIENT
  Sex: Male
  Weight: 74 kg

DRUGS (1)
  1. PAZOPANIB [Suspect]
     Indication: GASTROINTESTINAL CANCER METASTATIC
     Dosage: 800MG PER DAY
     Route: 048
     Dates: start: 20110625

REACTIONS (1)
  - PULMONARY EMBOLISM [None]
